FAERS Safety Report 17952891 (Version 1)
Quarter: 2020Q2

REPORT INFORMATION
  Report Type: Spontaneous
  Country: PT (occurrence: PT)
  Receive Date: 20200627
  Receipt Date: 20200627
  Transmission Date: 20200714
  Serious: Yes (Other)
  Sender: FDA-Public Use
  Company Number: PT-ACCORD-186389

PATIENT
  Age: 67 Year
  Sex: Male

DRUGS (2)
  1. MITOMYCIN. [Suspect]
     Active Substance: MITOMYCIN
     Indication: OPEN ANGLE GLAUCOMA
     Dosage: 0.02 ML (0.2 MG/ML)
     Route: 047
  2. MITOMYCIN. [Suspect]
     Active Substance: MITOMYCIN
     Indication: EXFOLIATION GLAUCOMA

REACTIONS (5)
  - Device occlusion [Recovered/Resolved]
  - Intraocular pressure increased [Recovered/Resolved]
  - Intentional product use issue [Unknown]
  - Ocular procedural complication [Recovered/Resolved]
  - Off label use [Unknown]
